FAERS Safety Report 6932869-0 (Version None)
Quarter: 2010Q3

REPORT INFORMATION
  Report Type: 
  Country: None (occurrence: None)
  Receive Date: 20100819
  Receipt Date: 20100809
  Transmission Date: 20110219
  Serious: Yes (Hospitalization)
  Sender: FDA-Public Use
  Company Number: US-WYE-H16192810

PATIENT
  Sex: Female
  Weight: 69.92 kg

DRUGS (18)
  1. TORISEL [Suspect]
     Indication: RENAL CANCER METASTATIC
     Route: 042
     Dates: start: 20090817, end: 20100301
  2. TORISEL [Suspect]
     Route: 042
     Dates: start: 20100309
  3. VYTORIN [Concomitant]
     Dosage: 10/20 MG 1 TABLET DAILY
     Route: 048
  4. TRICOR [Concomitant]
     Route: 048
  5. NEXIUM [Concomitant]
     Dosage: 1 CAPSULE DDAILY
     Route: 048
  6. ASPIRIN [Concomitant]
  7. AMBIEN [Concomitant]
     Dosage: UNKNOWN
     Route: 048
     Dates: start: 20090911
  8. FUROSEMIDE [Concomitant]
     Dosage: UNKNOWN
     Dates: start: 20100211
  9. K-DUR [Concomitant]
     Dosage: UNKNOWN
     Route: 048
     Dates: start: 20091204
  10. KEFLEX [Concomitant]
     Dosage: UNKNOWN
     Route: 048
     Dates: start: 20091204
  11. PROMETHAZINE [Concomitant]
     Dosage: UNKNOWN
     Route: 048
     Dates: start: 20100106
  12. ZITHROMAX [Concomitant]
     Dosage: UNKNOWN
     Dates: start: 20100106
  13. ALEVE (CAPLET) [Concomitant]
     Route: 048
  14. ASPIRIN [Concomitant]
     Route: 048
  15. NITROGLYCERIN [Concomitant]
     Dosage: 400MCG AS NEEDED TRANSLINGUAL
  16. OXYCONTIN [Concomitant]
     Dosage: 20MG Q12HRS OR TID
     Route: 048
     Dates: start: 20080215, end: 20100704
  17. VICODIN [Concomitant]
     Dosage: 500MG Q 4 - 6 HRS AS NEEDED
     Route: 048
     Dates: start: 20071109, end: 20100726
  18. AVASTIN [Suspect]
     Indication: RENAL CANCER METASTATIC
     Dosage: UNKNOWN
     Route: 042
     Dates: start: 20100309

REACTIONS (6)
  - BUNDLE BRANCH BLOCK LEFT [None]
  - BUNDLE BRANCH BLOCK RIGHT [None]
  - CHEST PAIN [None]
  - CORONARY ARTERY DISEASE [None]
  - VENTRICULAR HYPOKINESIA [None]
  - VENTRICULAR TACHYCARDIA [None]
